FAERS Safety Report 17862068 (Version 2)
Quarter: 2020Q2

REPORT INFORMATION
  Report Type: Spontaneous
  Country: CA (occurrence: CA)
  Receive Date: 20200604
  Receipt Date: 20200605
  Transmission Date: 20200714
  Serious: Yes (Other)
  Sender: FDA-Public Use
  Company Number: CA-JNJFOC-20200535221

PATIENT
  Age: 67 Year
  Sex: Female

DRUGS (1)
  1. TRAMACET [Suspect]
     Active Substance: ACETAMINOPHEN\TRAMADOL
     Indication: PAIN MANAGEMENT
     Route: 048
     Dates: start: 20200527

REACTIONS (4)
  - Urinary incontinence [Unknown]
  - Loss of consciousness [Recovered/Resolved]
  - Feeling cold [Unknown]
  - Nausea [Not Recovered/Not Resolved]

NARRATIVE: CASE EVENT DATE: 20200527
